FAERS Safety Report 24562748 (Version 1)
Quarter: 2024Q4

REPORT INFORMATION
  Report Type: Other
  Country: MA (occurrence: MA)
  Receive Date: 20241029
  Receipt Date: 20241029
  Transmission Date: 20250114
  Serious: Yes (Death, Hospitalization)
  Sender: BIONPHARMA INC.
  Company Number: MA-Bion-014183

PATIENT
  Age: 25 Year
  Sex: Male

DRUGS (2)
  1. AZITHROMYCIN [Suspect]
     Active Substance: AZITHROMYCIN
     Indication: COVID-19
  2. HYDROXYCHLOROQUINE [Concomitant]
     Active Substance: HYDROXYCHLOROQUINE
     Indication: COVID-19

REACTIONS (1)
  - Drug ineffective for unapproved indication [Fatal]
